FAERS Safety Report 5267334-2 (Version None)
Quarter: 2007Q1

REPORT INFORMATION
  Report Type: 
  Country: None (occurrence: None)
  Receive Date: 20070316
  Receipt Date: 20070307
  Transmission Date: 20070707
  Serious: Yes (Life-Threatening)
  Sender: FDA-Public Use
  Company Number: GB-ROCHE-486597

PATIENT
  Age: 41 Year
  Sex: Male
  Weight: 93 kg

DRUGS (2)
  1. XENICAL [Suspect]
     Indication: DRUG USE FOR UNKNOWN INDICATION
     Route: 048
     Dates: start: 20070216, end: 20070218
  2. NICOTINE [Concomitant]
     Indication: SMOKING CESSATION THERAPY
     Route: 062
     Dates: start: 20070119, end: 20070202

REACTIONS (2)
  - RECTAL HAEMORRHAGE [None]
  - THROMBOSIS [None]
